FAERS Safety Report 10067412 (Version 1)
Quarter: 2014Q2

REPORT INFORMATION
  Report Type: Spontaneous
  Country: US (occurrence: None)
  Receive Date: 20140408
  Receipt Date: 20140408
  Transmission Date: 20141212
  Serious: Yes (Other)
  Sender: FDA-Public Use
  Company Number: None

PATIENT
  Sex: 0

DRUGS (1)
  1. DIHYDROERGOTAMINE MESYLATE [Suspect]
     Route: 042

REACTIONS (3)
  - Product container issue [None]
  - Product container issue [None]
  - Laceration [None]
